FAERS Safety Report 21033871 (Version 1)
Quarter: 2022Q2

REPORT INFORMATION
  Report Type: Spontaneous
  Country: US (occurrence: None)
  Receive Date: 20220630
  Receipt Date: 20220630
  Transmission Date: 20220721
  Serious: No
  Sender: FDA-Public Use
  Company Number: None

PATIENT
  Age: 33 Year
  Sex: Female
  Weight: 60.75 kg

DRUGS (6)
  1. DEXTROAMPHET SACCHARAT, AMPHET ASPARTATE, DEXTROAMPHET SULFATE AND AMP [Suspect]
     Active Substance: AMPHETAMINE ASPARTATE\AMPHETAMINE SULFATE\DEXTROAMPHETAMINE SACCHARATE\DEXTROAMPHETAMINE SULFATE
     Indication: Attention deficit hyperactivity disorder
     Dosage: OTHER QUANTITY : 30 TABLET(S);?
     Route: 048
     Dates: start: 20220629
  2. CRANBERRY [Concomitant]
     Active Substance: CRANBERRY
  3. VITAMIN D [Concomitant]
     Active Substance: VITAMIN D NOS
  4. MAGNESIUM BISGLYCINATE [Concomitant]
  5. DIETARY SUPPLEMENT [Concomitant]
     Active Substance: DIETARY SUPPLEMENT
  6. FLUTICASONE PROPIONATE [Concomitant]
     Active Substance: FLUTICASONE PROPIONATE

REACTIONS (3)
  - Product substitution issue [None]
  - Headache [None]
  - Feeling abnormal [None]

NARRATIVE: CASE EVENT DATE: 20220629
